FAERS Safety Report 13389763 (Version 1)
Quarter: 2017Q1

REPORT INFORMATION
  Report Type: Spontaneous
  Country: FR (occurrence: FR)
  Receive Date: 20170331
  Receipt Date: 20170331
  Transmission Date: 20170429
  Serious: Yes (Death, Other)
  Sender: FDA-Public Use
  Company Number: FR-ACCORD-049630

PATIENT
  Age: 61 Year
  Sex: Male

DRUGS (14)
  1. DOCETAXEL ACCORD [Suspect]
     Active Substance: DOCETAXEL
     Indication: NASOPHARYNGEAL CANCER
     Dosage: STRENGTH: 160 MG/8 ML
     Route: 042
     Dates: start: 20170301
  2. KYTRIL [Concomitant]
     Active Substance: GRANISETRON HYDROCHLORIDE
     Dosage: ONE VIAL
     Route: 042
     Dates: start: 20170301
  3. PLITICAN [Concomitant]
     Active Substance: ALIZAPRIDE HYDROCHLORIDE
     Dosage: 2 VIALS
     Route: 042
     Dates: start: 20170304
  4. CISPLATINE ACCORD [Suspect]
     Active Substance: CISPLATIN
     Indication: NASOPHARYNGEAL CANCER
     Dosage: STRENGTH: 1 MG/ML
     Route: 042
     Dates: start: 20170301
  5. GAVISCON [Concomitant]
     Active Substance: ALUMINUM HYDROXIDE\MAGNESIUM CARBONATE
     Dosage: ONE PACKET
     Dates: start: 20170306
  6. POTASSIUM CHLORIDE. [Concomitant]
     Active Substance: POTASSIUM CHLORIDE
     Dates: start: 20170301, end: 20170305
  7. SODIUM CHLORIDE. [Concomitant]
     Active Substance: SODIUM CHLORIDE
     Dates: start: 20170301, end: 20170305
  8. EMEND [Concomitant]
     Active Substance: APREPITANT
     Indication: PROPHYLAXIS
     Route: 048
     Dates: start: 20170301
  9. SOLU-MEDROL [Concomitant]
     Active Substance: METHYLPREDNISOLONE SODIUM SUCCINATE
     Route: 042
     Dates: start: 20170301
  10. NEULASTA [Concomitant]
     Active Substance: PEGFILGRASTIM
     Dates: start: 20170307
  11. ONDANSETRON [Concomitant]
     Active Substance: ONDANSETRON
     Dosage: ONE VIAL
     Route: 042
     Dates: start: 20170301
  12. FLUOROURACILE PFIZER [Suspect]
     Active Substance: FLUOROURACIL
     Indication: NASOPHARYNGEAL CANCER
     Dosage: STRENGTH: 50 MG/ML
     Route: 042
     Dates: start: 20170301
  13. DAFALGAN [Concomitant]
     Active Substance: ACETAMINOPHEN
     Dates: start: 20170303
  14. MGSO5 [Concomitant]
     Dates: start: 20170301, end: 20170305

REACTIONS (6)
  - Agranulocytosis [Fatal]
  - Cardiac arrest [Unknown]
  - Vomiting [Unknown]
  - Septic shock [Fatal]
  - Thrombocytopenia [Unknown]
  - Diarrhoea [Fatal]

NARRATIVE: CASE EVENT DATE: 20170307
